FAERS Safety Report 7260906-5 (Version None)
Quarter: 2011Q1

REPORT INFORMATION
  Report Type: 
  Country: None (occurrence: None)
  Receive Date: 20110130
  Receipt Date: 20101227
  Transmission Date: 20110831
  Serious: No
  Sender: FDA-Public Use
  Company Number: US-ABBOTT-10P-163-0693796-00

PATIENT
  Age: 80 Year
  Sex: Female

DRUGS (4)
  1. HUMIRA [Suspect]
     Indication: PSORIATIC ARTHROPATHY
     Dates: start: 20101201
  2. CELEXA [Concomitant]
     Indication: ANXIETY
  3. PREMPRO [Concomitant]
     Indication: HOT FLUSH
  4. ACIPHEX [Concomitant]
     Indication: GASTRIC DISORDER

REACTIONS (2)
  - SWELLING [None]
  - ERYTHEMA [None]
